FAERS Safety Report 10050891 (Version 1)
Quarter: 2014Q2

REPORT INFORMATION
  Report Type: Spontaneous
  Country: CA (occurrence: CA)
  Receive Date: 20140401
  Receipt Date: 20140401
  Transmission Date: 20141212
  Serious: Yes (Hospitalization, Other)
  Sender: FDA-Public Use
  Company Number: CA-AMGEN-CANSP2014021544

PATIENT
  Age: 64 Year
  Sex: Female

DRUGS (1)
  1. ARANESP [Suspect]
     Indication: RENAL FAILURE CHRONIC
     Dosage: 40 MUG, UNK
     Route: 042
     Dates: start: 20110718

REACTIONS (5)
  - Cellulitis [Recovering/Resolving]
  - Knee arthroplasty [Recovered/Resolved]
  - Post procedural infection [Recovered/Resolved]
  - Varicose vein [Not Recovered/Not Resolved]
  - Dry skin [Not Recovered/Not Resolved]
